FAERS Safety Report 5560560-4 (Version None)
Quarter: 2007Q4

REPORT INFORMATION
  Report Type: 
  Country: None (occurrence: None)
  Receive Date: 20071215
  Receipt Date: 20071109
  Transmission Date: 20080405
  Serious: No
  Sender: FDA-Public Use
  Company Number: US-ABBOTT-07P-163-0424867-00

PATIENT
  Sex: Female
  Weight: 122.7 kg

DRUGS (2)
  1. HUMIRA [Suspect]
     Indication: ANKYLOSING SPONDYLITIS
     Route: 058
     Dates: start: 20071107
  2. PREDNISONE [Concomitant]
     Indication: ANKYLOSING SPONDYLITIS
     Route: 048

REACTIONS (4)
  - ACCIDENTAL EXPOSURE [None]
  - DIZZINESS [None]
  - INJECTION SITE IRRITATION [None]
  - NAUSEA [None]
